FAERS Safety Report 8426067-1 (Version None)
Quarter: 2012Q2

REPORT INFORMATION
  Report Type: 
  Country: None (occurrence: None)
  Receive Date: 20120611
  Receipt Date: 20120529
  Transmission Date: 20120825
  Serious: Yes (Hospitalization)
  Sender: FDA-Public Use
  Company Number: FR-ELI_LILLY_AND_COMPANY-FR201205009598

PATIENT
  Sex: Male

DRUGS (6)
  1. LEVEMIR [Concomitant]
  2. HUMALOG [Concomitant]
  3. LAMICTAL [Concomitant]
     Indication: BIPOLAR DISORDER
     Dosage: 200 MG, QD
  4. ZYPREXA [Suspect]
     Indication: BIPOLAR DISORDER
     Dosage: 10 MG, QD
     Dates: start: 20110101
  5. TRANXENE [Concomitant]
     Indication: BIPOLAR DISORDER
     Dosage: 7 MG, QD
  6. TERCIAN [Concomitant]
     Indication: BIPOLAR DISORDER
     Dosage: 37.5 MG, QD
     Dates: start: 20110101

REACTIONS (3)
  - AKINESIA [None]
  - FALL [None]
  - BRADYPHRENIA [None]
